FAERS Safety Report 10793944 (Version 1)
Quarter: 2015Q1

REPORT INFORMATION
  Report Type: Report from Study
  Country: KR (occurrence: KR)
  Receive Date: 20150213
  Receipt Date: 20150213
  Transmission Date: 20150721
  Serious: Yes (Hospitalization)
  Sender: FDA-Public Use
  Company Number: KR-ABBVIE-10P-090-0658211-00

PATIENT
  Sex: Male
  Weight: 64 kg

DRUGS (21)
  1. IPAROSIN [Concomitant]
     Indication: ANTIBIOTIC PROPHYLAXIS
     Route: 042
     Dates: start: 20100318, end: 20100318
  2. GREENCROSS INFLUENZA HA VACCINE [Concomitant]
     Indication: INFLUENZA IMMUNISATION
     Dosage: 1ML VIAL
     Route: 030
     Dates: start: 20100201, end: 20100201
  3. ATACAND [Concomitant]
     Active Substance: CANDESARTAN CILEXETIL
     Indication: PROTEINURIA
     Route: 048
     Dates: start: 20100719
  4. DENOGAN [Concomitant]
     Indication: ANALGESIC THERAPY
     Dosage: 1G/5ML VIAL
     Route: 042
     Dates: start: 20100319, end: 20100319
  5. VALTREX [Concomitant]
     Active Substance: VALACYCLOVIR HYDROCHLORIDE
     Dosage: 2 TABS DAILY
     Route: 048
     Dates: start: 20101116, end: 20101129
  6. BRUFEN [Concomitant]
     Active Substance: IBUPROFEN
     Indication: ORAL HERPES
     Dosage: 1200 MG DAILY
     Route: 048
     Dates: start: 20100816, end: 20100822
  7. MIYARISAN-VITA [Concomitant]
     Indication: GASTROINTESTINAL DISORDER
     Route: 048
     Dates: start: 20100319, end: 20100325
  8. DENOGAN [Concomitant]
     Indication: POSTOPERATIVE ANALGESIA
     Dosage: 1G/5ML
     Route: 050
  9. DIOVAN [Concomitant]
     Active Substance: VALSARTAN
     Indication: PROTEINURIA
     Dosage: 80 MG
     Route: 048
     Dates: start: 20100518, end: 20100524
  10. KALETRA [Suspect]
     Active Substance: LOPINAVIR\RITONAVIR
     Indication: HIV INFECTION
     Route: 065
     Dates: start: 20091102
  11. VARIDASE [Concomitant]
     Indication: DYSPEPSIA
     Dates: start: 20100319, end: 20100325
  12. VALTREX [Concomitant]
     Active Substance: VALACYCLOVIR HYDROCHLORIDE
     Indication: ORAL HERPES
     Dosage: 2 TABS DAILY
     Route: 048
     Dates: start: 20100816, end: 20100822
  13. DIFLUCAN [Concomitant]
     Active Substance: FLUCONAZOLE
     Indication: ORAL FUNGAL INFECTION
     Route: 048
     Dates: start: 20091028, end: 20091108
  14. KUNWHA SOMALGEN [Concomitant]
     Indication: ANTACID THERAPY
     Route: 048
     Dates: start: 20100319, end: 20100325
  15. XALATAN [Concomitant]
     Active Substance: LATANOPROST
     Indication: POSTOPERATIVE CARE
     Dosage: 50 MCG/ML 2.5 ML
     Route: 047
     Dates: start: 20100611, end: 20100617
  16. VARIDASE [Concomitant]
     Indication: POST PROCEDURAL INFLAMMATION
  17. TOBRADEX [Concomitant]
     Active Substance: DEXAMETHASONE\TOBRAMYCIN
     Indication: POSTOPERATIVE CARE
     Route: 047
     Dates: start: 20100319, end: 20100326
  18. 3TC/AZT [Concomitant]
     Indication: ANTIRETROVIRAL THERAPY
     Dates: start: 20091102
  19. VALSARTAN. [Concomitant]
     Active Substance: VALSARTAN
     Indication: HIV ASSOCIATED NEPHROPATHY
  20. OCUTROPINE EYE DROPS [Concomitant]
     Indication: POSTOPERATIVE CARE
     Dosage: 10MG/ML 5 ML
     Route: 047
     Dates: start: 20100319, end: 20100326
  21. BRUFEN [Concomitant]
     Active Substance: IBUPROFEN
     Indication: PAIN MANAGEMENT
     Dosage: 1200 MG DAILY
     Route: 048
     Dates: start: 20101116, end: 20101129

REACTIONS (6)
  - Dyspepsia [Recovered/Resolved]
  - Upper respiratory tract infection [Recovered/Resolved]
  - Retinal haemorrhage [Recovering/Resolving]
  - Pneumocystis jirovecii pneumonia [Recovered/Resolved]
  - Rash [Recovered/Resolved]
  - Fatigue [Recovered/Resolved]

NARRATIVE: CASE EVENT DATE: 20091130
